FAERS Safety Report 11057883 (Version 1)
Quarter: 2015Q2

REPORT INFORMATION
  Report Type: Report from Study
  Country: FR (occurrence: FR)
  Receive Date: 20150423
  Receipt Date: 20150423
  Transmission Date: 20150821
  Serious: Yes (Hospitalization)
  Sender: FDA-Public Use
  Company Number: FR-ROCHE-1164268

PATIENT
  Age: 69 Year
  Sex: Female

DRUGS (13)
  1. RITUXIMAB [Suspect]
     Active Substance: RITUXIMAB
     Route: 042
     Dates: start: 20060720, end: 20071002
  2. CORTANCYL [Concomitant]
     Active Substance: PREDNISONE
     Route: 065
  3. KLIPAL [Concomitant]
     Active Substance: ACETAMINOPHEN\CODEINE PHOSPHATE
  4. LOVENOX [Concomitant]
     Active Substance: ENOXAPARIN SODIUM
  5. FORLAX [Concomitant]
     Active Substance: POLYETHYLENE GLYCOL 4000
  6. OXYCONTIN [Concomitant]
     Active Substance: OXYCODONE HYDROCHLORIDE
  7. CORTANCYL [Concomitant]
     Active Substance: PREDNISONE
     Route: 065
  8. RITUXIMAB [Suspect]
     Active Substance: RITUXIMAB
     Indication: RHEUMATOID ARTHRITIS
     Route: 042
     Dates: start: 20060705
  9. CORTANCYL [Concomitant]
     Active Substance: PREDNISONE
     Route: 065
  10. DEROXAT [Concomitant]
     Active Substance: PAROXETINE HYDROCHLORIDE
  11. RITUXIMAB [Suspect]
     Active Substance: RITUXIMAB
     Route: 042
     Dates: start: 20081104, end: 20091027
  12. LAROXYL [Concomitant]
     Active Substance: AMITRIPTYLINE
  13. CELEBREX [Concomitant]
     Active Substance: CELECOXIB

REACTIONS (7)
  - Device related infection [Recovered/Resolved]
  - Fracture [Unknown]
  - Clostridium difficile colitis [Recovered/Resolved]
  - Pseudomonas infection [Not Recovered/Not Resolved]
  - Pyelonephritis [Recovered/Resolved]
  - Acute kidney injury [Recovered/Resolved]
  - Bronchitis [Recovered/Resolved]

NARRATIVE: CASE EVENT DATE: 2007
